FAERS Safety Report 9440678 (Version 1)
Quarter: 2013Q3

REPORT INFORMATION
  Report Type: Report from Study
  Country: US (occurrence: US)
  Receive Date: 20130805
  Receipt Date: 20130805
  Transmission Date: 20140515
  Serious: Yes (Hospitalization)
  Sender: FDA-Public Use
  Company Number: US-ROCHE-1219819

PATIENT
  Age: 58 Year
  Sex: Female
  Weight: 63.56 kg

DRUGS (5)
  1. HERCEPTIN [Suspect]
     Indication: BREAST CANCER METASTATIC
     Route: 042
     Dates: start: 20110108, end: 20130421
  2. HERCEPTIN [Suspect]
     Route: 042
     Dates: start: 20130716
  3. XELODA [Suspect]
     Indication: BREAST CANCER METASTATIC
     Route: 048
     Dates: start: 20130428, end: 20130709
  4. AVASTIN [Suspect]
     Indication: PRODUCT USED FOR UNKNOWN INDICATION
     Route: 042
     Dates: start: 20090101, end: 20110101
  5. AVASTIN [Suspect]
     Route: 042
     Dates: end: 20130528

REACTIONS (10)
  - Ejection fraction abnormal [Unknown]
  - Stomatitis [Not Recovered/Not Resolved]
  - Renal disorder [Unknown]
  - Abdominal discomfort [Not Recovered/Not Resolved]
  - Abdominal pain upper [Not Recovered/Not Resolved]
  - Skin discolouration [Not Recovered/Not Resolved]
  - Skin discolouration [Unknown]
  - Proteinuria [Unknown]
  - Convulsion [Not Recovered/Not Resolved]
  - Blister [Unknown]
